FAERS Safety Report 9707883 (Version 6)
Quarter: 2015Q2

REPORT INFORMATION
  Report Type: Report from Study
  Country: US (occurrence: US)
  Receive Date: 20131125
  Receipt Date: 20150403
  Transmission Date: 20150821
  Serious: Yes (Hospitalization, Other)
  Sender: FDA-Public Use
  Company Number: US-AMGEN-USASP2013082431

PATIENT
  Sex: Male

DRUGS (26)
  1. PRENATAL VITAMINS                  /07499601/ [Concomitant]
     Indication: PREGNANCY
     Dosage: UNK UNK, QD
     Route: 064
     Dates: start: 201207, end: 201412
  2. PRENATAL DHA [Concomitant]
     Dosage: UNK UNK, QD
     Route: 064
     Dates: start: 201305
  3. HEPATITIS B                        /00470101/ [Concomitant]
     Dosage: UNK
     Dates: start: 20141020
  4. M-M-R II [Concomitant]
     Active Substance: MEASLES VIRUS STRAIN ENDERS^ ATTENUATED EDMONSTON LIVE ANTIGEN\MUMPS VIRUS STRAIN B LEVEL JERYL LYNN LIVE ANTIGEN\RUBELLA VIRUS STRAIN WISTAR RA 27/3 LIVE ANTIGEN
     Dosage: UNK
     Dates: start: 20150128
  5. HIB                                /00077101/ [Concomitant]
     Dosage: UNK
     Dates: start: 20140527
  6. POLIO [Concomitant]
     Dosage: UNK
     Dates: start: 20140728
  7. ROTAVIRUS VACCINE [Concomitant]
     Dosage: UNK
     Dates: start: 20140325
  8. VARICELLA VACCINE [Concomitant]
     Active Substance: VARICELLA-ZOSTER VIRUS STRAIN OKA/MERCK LIVE ANTIGEN
     Dosage: UNK
     Dates: start: 20150128
  9. DTAP [Concomitant]
     Active Substance: DIPHTHERIA AND TETANUS TOXOIDS AND ACELLULAR PERTUSSIS VACCINE ADSORBED
     Dosage: UNK
     Dates: start: 20140325
  10. HEPATITIS B                        /00470101/ [Concomitant]
     Dosage: UNK
     Dates: start: 20140325
  11. HEPATITIS B                        /00470101/ [Concomitant]
     Dosage: UNK
     Dates: start: 20140728
  12. POLIO [Concomitant]
     Dosage: UNK
     Dates: start: 20140527
  13. VITAMIN D                          /00107901/ [Concomitant]
     Active Substance: ERGOCALCIFEROL
     Dosage: 1 DROPPER FULL, ONCE A DAY
     Route: 048
     Dates: start: 20140424
  14. DTAP [Concomitant]
     Active Substance: DIPHTHERIA AND TETANUS TOXOIDS AND ACELLULAR PERTUSSIS VACCINE ADSORBED
     Dosage: UNK
     Dates: start: 20140527
  15. DTAP [Concomitant]
     Active Substance: DIPHTHERIA AND TETANUS TOXOIDS AND ACELLULAR PERTUSSIS VACCINE ADSORBED
     Dosage: UNK
     Dates: start: 20140728
  16. PNEUMOCOCCAL 13 VALENT VACCINE [Concomitant]
     Active Substance: PNEUMOCOCCAL 13-VALENT CONJUGATE VACCINE
     Dosage: UNK
     Dates: start: 20150128
  17. POLIO [Concomitant]
     Dosage: UNK
     Dates: start: 20140325
  18. ROTAVIRUS VACCINE [Concomitant]
     Dosage: UNK
     Dates: start: 20140728
  19. ENBREL [Suspect]
     Active Substance: ETANERCEPT
     Indication: EXPOSURE DURING BREAST FEEDING
     Dosage: 50 MG, QWK
     Route: 063
     Dates: start: 201203
  20. HIB                                /00077101/ [Concomitant]
     Dosage: UNK
     Dates: start: 20140325
  21. INFLUENZA [Concomitant]
     Active Substance: INFLUENZA VIRUS VACCINE
     Dosage: UNK
     Dates: start: 20141020
  22. PNEUMOCOCCAL 13 VALENT VACCINE [Concomitant]
     Active Substance: PNEUMOCOCCAL 13-VALENT CONJUGATE VACCINE
     Dosage: UNK
     Dates: start: 20140527
  23. ROTAVIRUS VACCINE [Concomitant]
     Dosage: UNK
     Dates: start: 20140527
  24. HIB                                /00077101/ [Concomitant]
     Dosage: UNK
     Dates: start: 20140728
  25. PNEUMOCOCCAL 13 VALENT VACCINE [Concomitant]
     Active Substance: PNEUMOCOCCAL 13-VALENT CONJUGATE VACCINE
     Dosage: UNK
     Dates: start: 20140325
  26. PNEUMOCOCCAL 13 VALENT VACCINE [Concomitant]
     Active Substance: PNEUMOCOCCAL 13-VALENT CONJUGATE VACCINE
     Dosage: UNK
     Dates: start: 20140728

REACTIONS (4)
  - Hypospadias [Unknown]
  - Eczema [Recovering/Resolving]
  - Influenza [Unknown]
  - Exposure during breast feeding [Unknown]

NARRATIVE: CASE EVENT DATE: 201503
